APPROVED DRUG PRODUCT: DILTIAZEM HYDROCHLORIDE IN 0.72% SODIUM CHLORIDE
Active Ingredient: DILTIAZEM HYDROCHLORIDE
Strength: 250MG/250ML (1MG/ML)
Dosage Form/Route: SOLUTION;INTRAVENOUS
Application: N218038 | Product #002
Applicant: HQ SPECIALTY PHARMA CORP
Approved: Feb 21, 2025 | RLD: Yes | RS: Yes | Type: RX